FAERS Safety Report 13590076 (Version 1)
Quarter: 2017Q2

REPORT INFORMATION
  Report Type: Spontaneous
  Country: US (occurrence: US)
  Receive Date: 20170529
  Receipt Date: 20170529
  Transmission Date: 20170830
  Serious: Yes (Other)
  Sender: FDA-Public Use
  Company Number: None

PATIENT
  Age: 21 Year
  Sex: Male
  Weight: 63 kg

DRUGS (3)
  1. DEXYMETHYLPHENIDATE [Concomitant]
  2. TOPIRAMATE. [Suspect]
     Active Substance: TOPIRAMATE
     Indication: TOURETTE^S DISORDER
     Route: 048
  3. METHYLPHENIDATE. [Concomitant]
     Active Substance: METHYLPHENIDATE

REACTIONS (7)
  - Paranoia [None]
  - Suicidal ideation [None]
  - Fear [None]
  - Chest pain [None]
  - Depressed mood [None]
  - Crying [None]
  - Anger [None]
